FAERS Safety Report 6139608-4 (Version None)
Quarter: 2009Q2

REPORT INFORMATION
  Report Type: 
  Country: None (occurrence: None)
  Receive Date: 20090401
  Receipt Date: 20090320
  Transmission Date: 20091009
  Serious: Yes (Hospitalization)
  Sender: FDA-Public Use
  Company Number: FR-PFIZER INC-2009187860

PATIENT

DRUGS (6)
  1. ANSATIPINE [Suspect]
     Indication: SEPSIS
     Route: 048
     Dates: start: 20080901, end: 20090219
  2. ZECLAR [Concomitant]
     Dosage: UNK
     Route: 048
  3. ETAMIPHYLLIN HYDROCHLORIDE [Concomitant]
  4. BACTRIM [Concomitant]
     Dosage: UNK
  5. VALGANCICLOVIR [Concomitant]
     Dosage: UNK
  6. MOPRAL [Concomitant]
     Dosage: UNK

REACTIONS (3)
  - ARTHRALGIA [None]
  - C-REACTIVE PROTEIN INCREASED [None]
  - PYREXIA [None]
